FAERS Safety Report 9105663 (Version 2)
Quarter: 2013Q1

REPORT INFORMATION
  Report Type: Spontaneous
  Country: US (occurrence: US)
  Receive Date: 20130220
  Receipt Date: 20130326
  Transmission Date: 20140127
  Serious: Yes (Other)
  Sender: FDA-Public Use
  Company Number: US-009507513-1302USA005429

PATIENT
  Age: 51 None
  Sex: Female

DRUGS (5)
  1. SINGULAIR [Suspect]
     Dosage: UNK
     Route: 048
  2. CYMBALTA [Suspect]
     Indication: SPINAL CORD INJURY
     Dosage: 60 MG, EACH EVENING
     Dates: start: 2005
  3. ADVAIR [Suspect]
  4. TEGRETOL [Suspect]
  5. ZONEGRAN [Suspect]

REACTIONS (3)
  - Glossodynia [Unknown]
  - Anaphylactic reaction [Unknown]
  - Body temperature increased [Unknown]
